FAERS Safety Report 23231551 (Version 2)
Quarter: 2024Q1

REPORT INFORMATION
  Report Type: Spontaneous
  Country: ES (occurrence: ES)
  Receive Date: 20231127
  Receipt Date: 20240105
  Transmission Date: 20240410
  Serious: Yes (Hospitalization)
  Sender: FDA-Public Use
  Company Number: ES-OTSUKA-2023_028547

PATIENT
  Age: 23 Year
  Sex: Female

DRUGS (3)
  1. ARIPIPRAZOLE [Suspect]
     Active Substance: ARIPIPRAZOLE
     Indication: Psychotic disorder
     Dosage: UNK
     Route: 065
  2. OLANZAPINE [Concomitant]
     Active Substance: OLANZAPINE
     Indication: Electroconvulsive therapy
     Dosage: 20 MG, QD
     Route: 065
  3. RISPERIDONE [Concomitant]
     Active Substance: RISPERIDONE
     Indication: Antipsychotic therapy
     Dosage: UNK
     Route: 065

REACTIONS (5)
  - Drug intolerance [Unknown]
  - Oedema [Unknown]
  - Gait disturbance [Unknown]
  - Therapeutic response decreased [Unknown]
  - Product use in unapproved indication [Unknown]
